FAERS Safety Report 10187226 (Version 1)
Quarter: 2014Q2

REPORT INFORMATION
  Report Type: Spontaneous
  Country: MX (occurrence: None)
  Receive Date: 20140520
  Receipt Date: 20140520
  Transmission Date: 20141212
  Serious: Yes (Death, Hospitalization)
  Sender: FDA-Public Use
  Company Number: 2014MPI00560

PATIENT
  Age: 47 Year
  Sex: Female

DRUGS (1)
  1. ADCETRIS (BRENTUXIMAB VEDOTIN) INJECTION [Suspect]
     Indication: MYCOSIS FUNGOIDES
     Dates: end: 20140319

REACTIONS (4)
  - Pulmonary haemorrhage [None]
  - Gastrointestinal haemorrhage [None]
  - Hypovolaemic shock [None]
  - Sepsis [None]
